FAERS Safety Report 4784381-5 (Version None)
Quarter: 2005Q3

REPORT INFORMATION
  Report Type: 
  Country: None (occurrence: None)
  Receive Date: 20050930
  Receipt Date: 20050926
  Transmission Date: 20060218
  Serious: Yes (Death)
  Sender: FDA-Public Use
  Company Number: 2005AP05083

PATIENT
  Age: 76 Year
  Sex: Male

DRUGS (2)
  1. DIPRIVAN [Suspect]
     Indication: SEDATION
     Route: 042
  2. DILTIAZEM HYDROCHLORIDE [Concomitant]
     Dosage: 5 ML/H
     Route: 042
     Dates: start: 20050903

REACTIONS (1)
  - RHABDOMYOLYSIS [None]
